FAERS Safety Report 21518454 (Version 3)
Quarter: 2025Q1

REPORT INFORMATION
  Report Type: Report from Study
  Country: BR (occurrence: BR)
  Receive Date: 20221028
  Receipt Date: 20250304
  Transmission Date: 20250409
  Serious: Yes (Other)
  Sender: NOVARTIS
  Company Number: BR-NOVARTISPH-NVSC2021BR207228

PATIENT
  Age: 46 Year
  Sex: Female

DRUGS (6)
  1. COSENTYX [Suspect]
     Active Substance: SECUKINUMAB
     Indication: Psoriasis
     Route: 050
     Dates: start: 20210721
  2. COSENTYX [Suspect]
     Active Substance: SECUKINUMAB
     Route: 050
     Dates: start: 20210728
  3. COSENTYX [Suspect]
     Active Substance: SECUKINUMAB
     Route: 050
     Dates: start: 20210804
  4. COSENTYX [Suspect]
     Active Substance: SECUKINUMAB
     Route: 050
     Dates: start: 20210811
  5. COSENTYX [Suspect]
     Active Substance: SECUKINUMAB
     Route: 050
     Dates: start: 20210818
  6. METHOTREXATE [Suspect]
     Active Substance: METHOTREXATE
     Indication: Product used for unknown indication
     Route: 065

REACTIONS (31)
  - Suicidal ideation [Unknown]
  - Psoriatic arthropathy [Unknown]
  - Heart rate increased [Unknown]
  - Stress [Recovering/Resolving]
  - Anxiety [Recovering/Resolving]
  - Tremor [Unknown]
  - Malaise [Unknown]
  - Dyspnoea [Unknown]
  - Chest discomfort [Unknown]
  - Panic reaction [Recovering/Resolving]
  - Nervousness [Recovering/Resolving]
  - Social anxiety disorder [Unknown]
  - Depression [Recovering/Resolving]
  - Psoriasis [Unknown]
  - Pain of skin [Recovering/Resolving]
  - Pruritus [Recovering/Resolving]
  - Skin exfoliation [Recovering/Resolving]
  - Skin lesion [Recovering/Resolving]
  - Erythema [Recovering/Resolving]
  - Skin discolouration [Recovering/Resolving]
  - Therapeutic product effect incomplete [Unknown]
  - Drug ineffective [Unknown]
  - Weight increased [Recovering/Resolving]
  - Binge eating [Recovering/Resolving]
  - Arthralgia [Recovering/Resolving]
  - Burning sensation [Recovering/Resolving]
  - Swelling [Recovering/Resolving]
  - Discomfort [Recovering/Resolving]
  - Pigmentation disorder [Recovering/Resolving]
  - Skin fissures [Recovering/Resolving]
  - Chest pain [Recovering/Resolving]

NARRATIVE: CASE EVENT DATE: 20221101
